FAERS Safety Report 9362756 (Version 2)
Quarter: 2013Q3

REPORT INFORMATION
  Report Type: Spontaneous
  Country: US (occurrence: US)
  Receive Date: 20130623
  Receipt Date: 20130705
  Transmission Date: 20140515
  Serious: Yes (Death, Hospitalization, Other)
  Sender: FDA-Public Use
  Company Number: US-SANOFI-AVENTIS-2013SA061564

PATIENT
  Age: 73 Year
  Sex: Male
  Weight: 72.57 kg

DRUGS (4)
  1. PLAVIX [Suspect]
     Indication: ARRHYTHMIA
     Route: 048
     Dates: start: 20120626, end: 20130602
  2. ASPIRIN [Suspect]
     Route: 065
     Dates: start: 1980
  3. SIMVASTATIN [Concomitant]
     Indication: BLOOD CHOLESTEROL
     Route: 065
     Dates: start: 201206
  4. FISH OIL [Concomitant]
     Indication: BLOOD CHOLESTEROL
     Route: 065
     Dates: start: 201206

REACTIONS (5)
  - Arrhythmia [Unknown]
  - Cerebral haemorrhage [Fatal]
  - Malaise [Fatal]
  - Headache [Fatal]
  - Contusion [Unknown]
